FAERS Safety Report 4786060-7 (Version None)
Quarter: 2005Q4

REPORT INFORMATION
  Report Type: 
  Country: None (occurrence: None)
  Receive Date: 20051003
  Receipt Date: 20050721
  Transmission Date: 20060501
  Serious: Yes (Other)
  Sender: FDA-Public Use
  Company Number: 2005UW10920

PATIENT
  Age: 49 Year
  Sex: Female
  Weight: 63.6 kg

DRUGS (8)
  1. PULMICORT [Suspect]
     Indication: ASTHMA
     Route: 055
     Dates: start: 20040208, end: 20050721
  2. KEFLEX [Suspect]
     Indication: INFECTION
     Dosage: TWO DOSES
     Dates: start: 20050720, end: 20050721
  3. HYDROCHLOROTHIAZIDE [Concomitant]
     Indication: HYPERTENSION
     Route: 048
     Dates: start: 20040302
  4. MAVIK [Concomitant]
     Indication: HYPERTENSION
     Route: 048
     Dates: start: 20040905
  5. ALBUTEROL [Concomitant]
     Indication: ASTHMA
     Route: 055
     Dates: start: 20021219
  6. KLONOPIN [Concomitant]
     Indication: ANXIETY
     Route: 048
     Dates: start: 20021219
  7. PREDNISONE [Concomitant]
     Indication: RHEUMATOID ARTHRITIS
  8. LEXAPRO [Concomitant]
     Indication: DEPRESSION
     Route: 048
     Dates: start: 20050425

REACTIONS (4)
  - COUGH [None]
  - MALAISE [None]
  - TONGUE OEDEMA [None]
  - VOMITING [None]
